FAERS Safety Report 8460537-5 (Version None)
Quarter: 2012Q2

REPORT INFORMATION
  Report Type: 
  Country: None (occurrence: None)
  Receive Date: 20120622
  Receipt Date: 20120612
  Transmission Date: 20120825
  Serious: Yes (Death, Life-Threatening)
  Sender: FDA-Public Use
  Company Number: JP-AMGEN-JPNCT2012038565

PATIENT
  Age: 57 Year
  Sex: Female
  Weight: 51 kg

DRUGS (15)
  1. ROMIPLOSTIM - KHK [Suspect]
     Dosage: 100 MG, QWK
     Route: 058
     Dates: start: 20110810, end: 20110817
  2. ROMIPLOSTIM - KHK [Suspect]
     Dosage: 150 MG, QWK
     Route: 058
     Dates: start: 20111130, end: 20111130
  3. PREDNISOLONE [Concomitant]
     Indication: IDIOPATHIC THROMBOCYTOPENIC PURPURA
     Route: 048
     Dates: start: 20080623, end: 20120103
  4. LANSOPRAZOLE [Concomitant]
     Indication: PROPHYLAXIS
     Dosage: UNCERTAINTY
     Route: 048
  5. ROMIPLOSTIM - KHK [Suspect]
     Dosage: 50 MG, QWK
     Route: 058
     Dates: start: 20110824, end: 20110907
  6. ROMIPLOSTIM - KHK [Suspect]
     Dosage: 100 MG, QWK
     Route: 058
     Dates: start: 20110921, end: 20111005
  7. ROMIPLOSTIM - KHK [Suspect]
     Dosage: 150 MG, QWK
     Route: 058
     Dates: start: 20111012, end: 20111109
  8. ROMIPLOSTIM - KHK [Suspect]
     Dosage: 200 MG, QWK
     Route: 058
     Dates: start: 20111214, end: 20111228
  9. KOLANTYL [Concomitant]
     Indication: PROPHYLAXIS
     Dosage: UNCERTAINTY
     Route: 048
  10. ROMIPLOSTIM - KHK [Suspect]
     Indication: IDIOPATHIC THROMBOCYTOPENIC PURPURA
     Dosage: 50 MG, QWK
     Route: 058
     Dates: start: 20110720, end: 20110803
  11. PLETAL [Concomitant]
     Indication: PROPHYLAXIS
     Dosage: UNCERTAINTY
     Route: 048
  12. LASIX [Concomitant]
     Indication: OEDEMA
     Dosage: UNCERTAINTY
     Route: 048
  13. URSO 250 [Concomitant]
     Indication: LIVER DISORDER
     Dosage: UNCERTAINTY
     Route: 048
  14. DIOVAN [Concomitant]
     Indication: HYPERTENSION
     Dosage: UNCERTAINTY
     Route: 048
  15. MIGLITOL [Concomitant]
     Indication: DIABETES MELLITUS
     Dosage: UNCERTAINTY
     Route: 048

REACTIONS (4)
  - SEPSIS [None]
  - CEREBRAL INFARCTION [None]
  - WHITE BLOOD CELL COUNT INCREASED [None]
  - ANAEMIA [None]
